FAERS Safety Report 7163723-X (Version None)
Quarter: 2010Q4

REPORT INFORMATION
  Report Type: 
  Country: None (occurrence: None)
  Receive Date: 20101215
  Receipt Date: 20100602
  Transmission Date: 20110411
  Serious: Yes (Life-Threatening, Hospitalization, Other)
  Sender: FDA-Public Use
  Company Number: FR-PFIZER INC-2010029402

PATIENT
  Age: 39 Year
  Sex: Male
  Weight: 84 kg

DRUGS (6)
  1. LYRICA [Suspect]
     Indication: CERVICAL ROOT PAIN
     Dosage: 50 MG, 2X/DAY
     Dates: start: 20090904, end: 20090910
  2. LYRICA [Suspect]
     Indication: NEURALGIA
     Dosage: UNK
     Dates: start: 20090911, end: 20100304
  3. NEURONTIN [Suspect]
  4. CELESTONE [Concomitant]
     Indication: PAIN
     Dosage: 6 MG, 1X/DAY (3*2MG)
     Route: 048
     Dates: start: 20090904, end: 20090917
  5. PARACETAMOL [Concomitant]
     Indication: PAIN
     Dosage: 1 DF, 4X/DAY
     Route: 048
     Dates: start: 20090904
  6. TETRAZEPAM [Concomitant]
     Indication: MUSCLE CONTRACTURE
     Dosage: 1 DF, 1X/DAY
     Route: 048
     Dates: start: 20090821

REACTIONS (3)
  - FATIGUE [None]
  - ROAD TRAFFIC ACCIDENT [None]
  - SOMNOLENCE [None]
